FAERS Safety Report 22153451 (Version 1)
Quarter: 2023Q1

REPORT INFORMATION
  Report Type: Spontaneous
  Country: US (occurrence: US)
  Receive Date: 20230329
  Receipt Date: 20230329
  Transmission Date: 20230418
  Serious: Yes (Hospitalization, Other)
  Sender: FDA-Public Use
  Company Number: US-ALVOGEN-2023089385

PATIENT
  Sex: Male
  Weight: 108.8 kg

DRUGS (4)
  1. LISINOPRIL [Suspect]
     Active Substance: LISINOPRIL
     Indication: Product used for unknown indication
     Dates: start: 200812
  2. LISINOPRIL [Suspect]
     Active Substance: LISINOPRIL
     Indication: Product used for unknown indication
     Dosage: INCREASED THE DOSE OF LISINOPRIL
     Dates: start: 2009
  3. LISINOPRIL [Suspect]
     Active Substance: LISINOPRIL
     Indication: Product used for unknown indication
     Dosage: DOSE REDUCED TO 10 MG
  4. LISINOPRIL [Suspect]
     Active Substance: LISINOPRIL
     Indication: Product used for unknown indication
     Dates: end: 202302

REACTIONS (7)
  - Atrioventricular block [Unknown]
  - Atrial fibrillation [Unknown]
  - Atrial flutter [Unknown]
  - Depressed level of consciousness [Recovered/Resolved]
  - Dyspepsia [Unknown]
  - Euphoric mood [Recovered/Resolved]
  - Balance disorder [Recovered/Resolved]
